FAERS Safety Report 8247223 (Version 2)
Quarter: 2012Q4

REPORT INFORMATION
  Report Type: 
  Country: GB (occurrence: GB)
  Receive Date: 20111116
  Receipt Date: 20121119
  Transmission Date: 20130627
  Serious: Yes (Other)
  Sender: FDA-Public Use
  Company Number: PHFR2011GB006480

PATIENT
  Sex: Male
  Weight: 122 kg

DRUGS (4)
  1. CLOZARIL [Suspect]
     Route: 048
     Dates: start: 20060621
  2. LANSOPRAZOLE [Concomitant]
     Dosage: 30 mg, UNK
     Route: 048
  3. OMACOR [Concomitant]
     Route: 048
  4. VIEPAX [Concomitant]
     Dosage: 150 mg, UNK
     Route: 048

REACTIONS (5)
  - Anal abscess [Unknown]
  - Cellulitis [Unknown]
  - Infection [Recovered/Resolved]
  - Groin abscess [Recovered/Resolved]
  - Glucose tolerance impaired [Unknown]
